FAERS Safety Report 24805895 (Version 1)
Quarter: 2025Q1

REPORT INFORMATION
  Report Type: Spontaneous
  Country: US (occurrence: US)
  Receive Date: 20250103
  Receipt Date: 20250103
  Transmission Date: 20250408
  Serious: Yes (Other)
  Sender: PFIZER
  Company Number: US-PFIZER INC-202400334594

PATIENT
  Age: 26 Year
  Sex: Female
  Weight: 61.23 kg

DRUGS (4)
  1. SPIRONOLACTONE [Suspect]
     Active Substance: SPIRONOLACTONE
     Indication: Acne
     Route: 048
     Dates: start: 202407, end: 2024
  2. SPIRONOLACTONE [Suspect]
     Active Substance: SPIRONOLACTONE
     Dosage: 50 MG, 1X/DAY
     Route: 048
     Dates: start: 2024, end: 202408
  3. SPIRONOLACTONE [Suspect]
     Active Substance: SPIRONOLACTONE
     Dosage: 25MG TABLET ONCE A DAY
     Route: 048
     Dates: start: 202408, end: 20241019
  4. TAYTULLA [Concomitant]
     Active Substance: ETHINYL ESTRADIOL\NORETHINDRONE ACETATE
     Indication: Contraception
     Dosage: 1 MG, 1X/DAY
     Route: 048
     Dates: start: 202401

REACTIONS (17)
  - Syncope [Unknown]
  - Myocardial infarction [Unknown]
  - Mood swings [Unknown]
  - Hormone level abnormal [Unknown]
  - Chest pain [Not Recovered/Not Resolved]
  - Dyspnoea [Not Recovered/Not Resolved]
  - Dizziness [Not Recovered/Not Resolved]
  - Heart rate increased [Unknown]
  - Pain in jaw [Unknown]
  - Pain in extremity [Unknown]
  - Nervous system disorder [Unknown]
  - Chest discomfort [Unknown]
  - Palpitations [Unknown]
  - Feeling abnormal [Unknown]
  - Hepatic enzyme increased [Unknown]
  - Iron binding capacity total increased [Unknown]
  - Off label use [Unknown]

NARRATIVE: CASE EVENT DATE: 20240101
